FAERS Safety Report 15058411 (Version 1)
Quarter: 2018Q2

REPORT INFORMATION
  Report Type: Spontaneous
  Country: PL (occurrence: PL)
  Receive Date: 20180625
  Receipt Date: 20180625
  Transmission Date: 20180711
  Serious: Yes (Other)
  Sender: FDA-Public Use
  Company Number: PL-STRIDES ARCOLAB LIMITED-2018SP005191

PATIENT

DRUGS (12)
  1. ROPINIROLE. [Interacting]
     Active Substance: ROPINIROLE
     Dosage: 8 MG, PER DAY (8 MG,QD)
     Route: 048
  2. AMITRIPTYLINE HYDROCHLORIDE. [Interacting]
     Active Substance: AMITRIPTYLINE HYDROCHLORIDE
     Indication: SLEEP DISORDER
     Dosage: 25 MG, PER DAY (25 MG,QD)
     Route: 065
  3. CARBIDOPA/LEVODOPA [Interacting]
     Active Substance: CARBIDOPA\LEVODOPA
     Indication: PARKINSON^S DISEASE
     Dosage: UNK, PER DAY (UNK, QD )
     Route: 065
  4. OXYBUTYNIN. [Interacting]
     Active Substance: OXYBUTYNIN CHLORIDE
     Indication: URINARY INCONTINENCE
     Dosage: 5 MG, EVERY 8 HOURS (15 MG,QD)
     Route: 065
  5. RIVASTIGMINE. [Interacting]
     Active Substance: RIVASTIGMINE
     Indication: PRODUCT USED FOR UNKNOWN INDICATION
     Dosage: UNK UNK,UNK
     Route: 065
  6. ROPINIROLE. [Interacting]
     Active Substance: ROPINIROLE
     Indication: PARKINSON^S DISEASE
     Dosage: 2 MG,PER DAY (2 MG,QD)
     Route: 048
  7. AMITRIPTYLINE HYDROCHLORIDE. [Interacting]
     Active Substance: AMITRIPTYLINE HYDROCHLORIDE
     Indication: DEPRESSION
     Dosage: UNK
     Route: 065
  8. HYDROXYZINE [Concomitant]
     Active Substance: HYDROXYZINE HYDROCHLORIDE
     Indication: ANXIETY DISORDER
     Dosage: 25 MG, PER DAY (25 MG,QD)
     Route: 065
  9. CLOZAPINE. [Interacting]
     Active Substance: CLOZAPINE
     Indication: PRODUCT USED FOR UNKNOWN INDICATION
     Dosage: UNK
     Route: 065
  10. BIPERIDEN [Interacting]
     Active Substance: BIPERIDEN
     Indication: PARKINSON^S DISEASE
     Dosage: 2 MG, EVERY 12 HRS (4 MG,QD)
     Route: 065
  11. AMANTADINE HYDROCHLORIDE. [Suspect]
     Active Substance: AMANTADINE HYDROCHLORIDE
     Indication: PARKINSON^S DISEASE
     Dosage: UNK UNK, EVERY 12 HRS (UNK, BID)
     Route: 065
  12. RASAGILINE TARTRATE [Interacting]
     Active Substance: RASAGILINE TARTRATE
     Indication: PARKINSON^S DISEASE
     Dosage: 1 MG,PER DAY (1 MG,QD)
     Route: 065

REACTIONS (16)
  - Parkinson^s disease [Unknown]
  - Cerebral atrophy [Unknown]
  - Pneumonia [Recovered/Resolved]
  - On and off phenomenon [Unknown]
  - Drug interaction [Unknown]
  - Musculoskeletal stiffness [Unknown]
  - Psychotic symptom [Unknown]
  - Mental impairment [Unknown]
  - Anxiety [Unknown]
  - Bradykinesia [Unknown]
  - Dementia [Unknown]
  - Neutrophil count increased [Unknown]
  - Hallucination, visual [Recovered/Resolved]
  - C-reactive protein increased [Unknown]
  - Resting tremor [Unknown]
  - Leukocytosis [Unknown]
